FAERS Safety Report 22596183 (Version 1)
Quarter: 2023Q2

REPORT INFORMATION
  Report Type: Spontaneous
  Country: US (occurrence: US)
  Receive Date: 20230613
  Receipt Date: 20230613
  Transmission Date: 20230722
  Serious: No
  Sender: FDA-Public Use
  Company Number: US-RIGEL PHARMACEUTICALS, INC.-2022FOS000799

PATIENT
  Sex: Female

DRUGS (1)
  1. TAVALISSE [Suspect]
     Active Substance: FOSTAMATINIB
     Indication: Immune thrombocytopenia
     Dosage: 150 MILLIGRAM TABLET EACH MORNING AND 100 MILLIGRAM TABLET EVERY EVENING
     Route: 048

REACTIONS (7)
  - Urinary retention [Unknown]
  - Walking aid user [Unknown]
  - Feeling abnormal [Unknown]
  - Dialysis [Unknown]
  - Platelet count increased [Unknown]
  - Product prescribing issue [Unknown]
  - Diarrhoea [Unknown]
